FAERS Safety Report 5374658-7 (Version None)
Quarter: 2007Q2

REPORT INFORMATION
  Report Type: 
  Country: None (occurrence: None)
  Receive Date: 20070629
  Receipt Date: 20070620
  Transmission Date: 20071010
  Serious: Yes (Disabling)
  Sender: FDA-Public Use
  Company Number: BR-AVENTIS-200715621GDDC

PATIENT
  Age: 58 Year
  Sex: Male
  Weight: 113 kg

DRUGS (12)
  1. LANTUS [Suspect]
     Route: 058
     Dates: start: 20051201, end: 20061201
  2. LANTUS [Suspect]
     Route: 058
     Dates: start: 20061201
  3. OPTIPEN (INSULIN PUMP) [Suspect]
     Route: 058
     Dates: start: 20051201
  4. SIMVASTATIN [Concomitant]
     Route: 048
     Dates: start: 20040201
  5. CAPTOPRIL [Concomitant]
     Route: 048
     Dates: start: 20040201
  6. ATENOLOL [Concomitant]
     Route: 048
     Dates: start: 20040201
  7. ISCOVER [Concomitant]
     Route: 048
     Dates: start: 20040201
  8. AAS [Concomitant]
     Route: 048
     Dates: start: 20040201
  9. DIGOXIN [Concomitant]
     Route: 048
     Dates: start: 20040201
  10. FUROSEMIDE [Concomitant]
     Route: 048
     Dates: start: 20040201
  11. ALDACTONE [Concomitant]
     Route: 048
     Dates: start: 20040201
  12. AMIODARONE [Concomitant]
     Route: 048
     Dates: start: 20040201

REACTIONS (7)
  - CARDIAC DISORDER [None]
  - DYSPNOEA [None]
  - EXTREMITY NECROSIS [None]
  - HYPERGLYCAEMIA [None]
  - HYPOGLYCAEMIA [None]
  - PALPITATIONS [None]
  - PROTEINURIA [None]
